FAERS Safety Report 23822890 (Version 1)
Quarter: 2024Q2

REPORT INFORMATION
  Report Type: Spontaneous
  Country: CN (occurrence: CN)
  Receive Date: 20240506
  Receipt Date: 20240506
  Transmission Date: 20240716
  Serious: Yes (Hospitalization)
  Sender: FDA-Public Use
  Company Number: CN-BEIGENE-BGN-2024-006595

PATIENT

DRUGS (4)
  1. TISLELIZUMAB [Suspect]
     Active Substance: TISLELIZUMAB
     Indication: Malignant peritoneal neoplasm
     Dosage: 200 MILLIGRAM
     Route: 041
     Dates: start: 20240316
  2. CISPLATIN [Suspect]
     Active Substance: CISPLATIN
     Indication: Malignant peritoneal neoplasm
     Dosage: 40 MILLIGRAM, Q3WK
     Route: 041
     Dates: start: 20240316, end: 20240317
  3. CISPLATIN [Suspect]
     Active Substance: CISPLATIN
     Dosage: 30 MILLIGRAM, Q3WK
     Route: 041
     Dates: start: 20240318, end: 20240318
  4. PACLITAXEL [Suspect]
     Active Substance: PACLITAXEL
     Indication: Malignant peritoneal neoplasm
     Dosage: 200 MILLIGRAM
     Route: 041
     Dates: start: 20240316

REACTIONS (1)
  - Hepatic function abnormal [Recovered/Resolved]

NARRATIVE: CASE EVENT DATE: 20240410
